FAERS Safety Report 17041148 (Version 1)
Quarter: 2019Q4

REPORT INFORMATION
  Report Type: Report from Study
  Country: US (occurrence: US)
  Receive Date: 20191118
  Receipt Date: 20191118
  Transmission Date: 20200122
  Serious: Yes (Hospitalization)
  Sender: FDA-Public Use
  Company Number: US-ROCHE-2467759

PATIENT
  Sex: Female

DRUGS (1)
  1. ACTEMRA [Suspect]
     Active Substance: TOCILIZUMAB
     Indication: MICROSCOPIC POLYANGIITIS
     Route: 058

REACTIONS (3)
  - Intentional product use issue [Unknown]
  - Ulcer haemorrhage [Unknown]
  - Off label use [Unknown]
